FAERS Safety Report 8888814 (Version 2)
Quarter: 2012Q4

REPORT INFORMATION
  Report Type: 
  Country: US (occurrence: US)
  Receive Date: 20121106
  Receipt Date: 20121220
  Transmission Date: 20130627
  Serious: Yes (Hospitalization, Other)
  Sender: FDA-Public Use
  Company Number: US-PFIZER INC-2012274951

PATIENT
  Age: 67 Year
  Sex: Female
  Weight: 95.24 kg

DRUGS (4)
  1. LYRICA [Suspect]
     Indication: FIBROMYALGIA
     Dosage: 150 mg, 3x/day
     Route: 048
     Dates: start: 201208, end: 20121005
  2. SAVELLA [Concomitant]
     Dosage: 100 mg, 2x/day
  3. TRAZODONE [Concomitant]
     Indication: SLEEP DISORDER
     Dosage: 100 mg, UNK
  4. AMLODIPINE [Concomitant]
     Indication: HYPERTENSION
     Dosage: UNK

REACTIONS (8)
  - Suicidal behaviour [Recovered/Resolved]
  - Coma [Recovered/Resolved]
  - Overdose [Unknown]
  - Irritability [Recovered/Resolved]
  - Depression [Recovered/Resolved]
  - Swollen tongue [Recovered/Resolved]
  - Back pain [Recovered/Resolved]
  - Blood test abnormal [Unknown]
